FAERS Safety Report 9207872 (Version 2)
Quarter: 2013Q4

REPORT INFORMATION
  Report Type: Spontaneous
  Country: US (occurrence: US)
  Receive Date: 20130403
  Receipt Date: 20131021
  Transmission Date: 20140711
  Serious: Yes (Hospitalization)
  Sender: FDA-Public Use
  Company Number: US-BAYER-2013-040331

PATIENT
  Age: 18 Year
  Sex: Female
  Weight: 46.26 kg

DRUGS (5)
  1. YAZ [Suspect]
     Dosage: UNK
     Dates: start: 2008, end: 201012
  2. TAZORAC [Concomitant]
     Dosage: 0.05 %, UNK
     Dates: start: 20090106
  3. DICYCLOMINE [Concomitant]
     Dosage: 10 MG, UNK
     Dates: start: 20081118
  4. BACTRIM [Concomitant]
  5. KINEVAC [Concomitant]

REACTIONS (9)
  - Gallbladder disorder [None]
  - Nephrolithiasis [None]
  - Biliary dyskinesia [None]
  - Emotional distress [None]
  - Pain [None]
  - Injury [None]
  - Anxiety [None]
  - Depression [None]
  - Gastric disorder [None]
